FAERS Safety Report 12518666 (Version 1)
Quarter: 2016Q2

REPORT INFORMATION
  Report Type: Report from Study
  Country: PL (occurrence: PL)
  Receive Date: 20160630
  Receipt Date: 20160630
  Transmission Date: 20160815
  Serious: Yes (Other)
  Sender: FDA-Public Use
  Company Number: PHHY2016PL072588

PATIENT
  Age: 40 Year
  Sex: Female

DRUGS (3)
  1. DASATINIB [Concomitant]
     Active Substance: DASATINIB
     Indication: PRODUCT USED FOR UNKNOWN INDICATION
     Dosage: 140 MG, UNK
     Route: 065
  2. NILOTINIB [Suspect]
     Active Substance: NILOTINIB
     Dosage: 400 MG, QD
     Route: 065
  3. NILOTINIB [Suspect]
     Active Substance: NILOTINIB
     Indication: CHRONIC MYELOID LEUKAEMIA
     Dosage: 800 MG, QD
     Route: 065
     Dates: start: 2006

REACTIONS (6)
  - Gene mutation [Unknown]
  - Neutrophil count decreased [Unknown]
  - Haematotoxicity [Unknown]
  - Drug ineffective [Unknown]
  - Blast crisis in myelogenous leukaemia [Unknown]
  - Platelet count decreased [Unknown]

NARRATIVE: CASE EVENT DATE: 200808
